FAERS Safety Report 25798863 (Version 4)
Quarter: 2025Q4

REPORT INFORMATION
  Report Type: Report from Study
  Country: GB (occurrence: GB)
  Receive Date: 20250913
  Receipt Date: 20251003
  Transmission Date: 20260119
  Serious: Yes (Hospitalization)
  Sender: ABBVIE
  Company Number: GB-ABBVIE-6449750

PATIENT
  Age: 68 Year
  Sex: Female

DRUGS (5)
  1. CARBIDOPA\LEVODOPA [Suspect]
     Active Substance: CARBIDOPA\LEVODOPA
     Indication: Parkinson^s disease
     Dosage: MD= 9.6 , CR= 1.8, ED= 1.2?DUODOPA 20MG/5MG
     Route: 050
     Dates: start: 20230816
  2. CARBIDOPA\LEVODOPA [Suspect]
     Active Substance: CARBIDOPA\LEVODOPA
     Dosage: ED REDUCED FROM 1.2 TO 1.0MLS?MD=9.6, CR= 1.8, ED=1.0?DUODOPA 20MG/5MG
     Route: 050
  3. GLYCERIN [Concomitant]
     Active Substance: GLYCERIN
     Indication: Product used for unknown indication
  4. QUININE [Concomitant]
     Active Substance: QUININE
     Indication: Product used for unknown indication
     Dates: end: 2025
  5. MORPHINE [Suspect]
     Active Substance: MORPHINE
     Indication: Product used for unknown indication
     Route: 065

REACTIONS (14)
  - Lower respiratory tract infection [Recovered/Resolved]
  - Somnolence [Not Recovered/Not Resolved]
  - Dyskinesia [Recovered/Resolved]
  - Constipation [Recovered/Resolved]
  - Weight decreased [Not Recovered/Not Resolved]
  - On and off phenomenon [Unknown]
  - Bradykinesia [Not Recovered/Not Resolved]
  - Anxiety [Unknown]
  - Tooth disorder [Unknown]
  - Muscle spasms [Unknown]
  - Nightmare [Not Recovered/Not Resolved]
  - Gastrointestinal disorder [Not Recovered/Not Resolved]
  - Nausea [Not Recovered/Not Resolved]
  - Vomiting [Not Recovered/Not Resolved]

NARRATIVE: CASE EVENT DATE: 20250101
